FAERS Safety Report 7823259-7 (Version None)
Quarter: 2011Q4

REPORT INFORMATION
  Report Type: 
  Country: None (occurrence: None)
  Receive Date: 20111013
  Receipt Date: 20110927
  Transmission Date: 20120403
  Serious: Yes (Hospitalization, Other)
  Sender: FDA-Public Use
  Company Number: 2011MA014513

PATIENT
  Age: 17 Year
  Sex: Female
  Weight: 63 kg

DRUGS (2)
  1. FEVERALL [Suspect]
     Indication: PRODUCT USED FOR UNKNOWN INDICATION
     Dosage: 10000 MG;X1;PO
     Route: 048
  2. ALCOHOL (ETHANOL) [Suspect]
     Indication: ALCOHOL USE
     Dosage: 300 ML;PO
     Route: 048

REACTIONS (17)
  - EDUCATIONAL PROBLEM [None]
  - ALCOHOL POISONING [None]
  - STRESS [None]
  - TUBULOINTERSTITIAL NEPHRITIS [None]
  - EXCESSIVE EXERCISE [None]
  - BLOOD BILIRUBIN INCREASED [None]
  - GASTROINTESTINAL DISORDER [None]
  - RENAL INJURY [None]
  - URINE OUTPUT INCREASED [None]
  - OVERDOSE [None]
  - BACK PAIN [None]
  - RENAL FAILURE [None]
  - BLOOD SODIUM DECREASED [None]
  - RASH [None]
  - THIRST [None]
  - LIVER DISORDER [None]
  - BLOOD PRESSURE DIASTOLIC INCREASED [None]
